FAERS Safety Report 23198735 (Version 2)
Quarter: 2025Q1

REPORT INFORMATION
  Report Type: Spontaneous
  Country: IN (occurrence: IN)
  Receive Date: 20231117
  Receipt Date: 20250207
  Transmission Date: 20250409
  Serious: Yes (Other)
  Sender: PFIZER
  Company Number: IN-PFIZER INC-PV202200029696

PATIENT
  Age: 44 Year
  Sex: Male

DRUGS (2)
  1. LORLATINIB [Suspect]
     Active Substance: LORLATINIB
     Indication: Lung adenocarcinoma
     Dosage: 100 MG 1-0-0
     Route: 048
     Dates: start: 202206
  2. ROSUVAS F [Concomitant]
     Dosage: 10MG 0-0-1

REACTIONS (3)
  - Pulmonary embolism [Unknown]
  - Blood cholesterol increased [Unknown]
  - Heart rate increased [Unknown]
